FAERS Safety Report 8175151-9 (Version None)
Quarter: 2012Q1

REPORT INFORMATION
  Report Type: 
  Country: None (occurrence: None)
  Receive Date: 20120229
  Receipt Date: 20120224
  Transmission Date: 20120608
  Serious: Yes (Hospitalization)
  Sender: FDA-Public Use
  Company Number: PHHY2011IT81502

PATIENT
  Sex: Male

DRUGS (1)
  1. TEGRETOL [Suspect]
     Indication: EPILEPSY
     Dosage: 50 MG, UNK
     Route: 048
     Dates: start: 20110721, end: 20110731

REACTIONS (6)
  - GASTRIC DILATATION [None]
  - PYREXIA [None]
  - VOMITING [None]
  - PERISTALSIS VISIBLE [None]
  - RETCHING [None]
  - FLATULENCE [None]
